FAERS Safety Report 4440160-X (Version None)
Quarter: 2004Q3

REPORT INFORMATION
  Report Type: 
  Country: None (occurrence: None)
  Receive Date: 20040903
  Receipt Date: 20040825
  Transmission Date: 20050211
  Serious: Yes (Other)
  Sender: FDA-Public Use
  Company Number: US-JNJFOC-20040808857

PATIENT
  Sex: Male
  Weight: 61.24 kg

DRUGS (5)
  1. REMICADE [Suspect]
     Indication: RHEUMATOID ARTHRITIS
     Route: 042
  2. METHOTREXATE [Concomitant]
     Route: 049
  3. FOLIC ACID [Concomitant]
  4. AZULFIDINE [Concomitant]
  5. PREDNISONE [Concomitant]

REACTIONS (1)
  - CYTOMEGALOVIRUS INFECTION [None]
